FAERS Safety Report 23772574 (Version 1)
Quarter: 2024Q2

REPORT INFORMATION
  Report Type: Spontaneous
  Country: US (occurrence: None)
  Receive Date: 20240422
  Receipt Date: 20240422
  Transmission Date: 20240715
  Serious: Yes (Death)
  Sender: FDA-Public Use
  Company Number: None

PATIENT
  Age: 67 Year
  Sex: Male

DRUGS (1)
  1. BOTOX [Suspect]
     Active Substance: ONABOTULINUMTOXINA
     Indication: Migraine
     Dosage: OTHER QUANTITY : 200 UNITS;?OTHER FREQUENCY : EVERY 3 MONTHS;?
     Route: 030
     Dates: start: 20230602, end: 20240202

REACTIONS (1)
  - Death [None]

NARRATIVE: CASE EVENT DATE: 20240321
